FAERS Safety Report 21376470 (Version 1)
Quarter: 2022Q3

REPORT INFORMATION
  Report Type: Spontaneous
  Country: DE (occurrence: DE)
  Receive Date: 20220926
  Receipt Date: 20220926
  Transmission Date: 20221027
  Serious: Yes (Life-Threatening, Hospitalization, Other)
  Sender: FDA-Public Use
  Company Number: DE-ADRED-08053-01

PATIENT
  Age: 47 Year
  Sex: Male
  Weight: 83 kg

DRUGS (4)
  1. INSULIN GLARGINE [Suspect]
     Active Substance: INSULIN GLARGINE
     Dosage: 0-0-0-22 , QD
     Route: 058
  2. INSULIN LISPRO [Suspect]
     Active Substance: INSULIN LISPRO
     Dosage: 6-5-5-0, TID
     Route: 058
  3. RAMIPRIL [Concomitant]
     Active Substance: RAMIPRIL
     Dosage: 1-0-0-0
     Route: 048
  4. PANTOPRAZOLE [Concomitant]
     Active Substance: PANTOPRAZOLE
     Dosage: 1-0-0-0
     Route: 048

REACTIONS (8)
  - Nausea [Unknown]
  - Diabetes mellitus inadequate control [Unknown]
  - Hyperglycaemia [Unknown]
  - Diabetic ketoacidosis [Unknown]
  - Abdominal pain [Unknown]
  - Vomiting [Unknown]
  - Dyspepsia [Unknown]
  - Product monitoring error [Unknown]
